FAERS Safety Report 18770002 (Version 8)
Quarter: 2022Q3

REPORT INFORMATION
  Report Type: Other
  Country: AR (occurrence: AR)
  Receive Date: 20210122
  Receipt Date: 20220909
  Transmission Date: 20221027
  Serious: Yes (Hospitalization, Other)
  Sender: FDA-Public Use
  Company Number: AR-002147023-PHHY2018AR124209

PATIENT
  Age: 34 Year
  Sex: Female

DRUGS (3)
  1. XOLAIR [Suspect]
     Active Substance: OMALIZUMAB
     Indication: Asthma
     Dosage: 600 MG, QMO
     Route: 058
     Dates: start: 20170801, end: 20190919
  2. XOLAIR [Suspect]
     Active Substance: OMALIZUMAB
     Dosage: 450 MG, QMO
     Route: 058
     Dates: start: 20190619
  3. XOLAIR [Suspect]
     Active Substance: OMALIZUMAB
     Dosage: 450 MG QMO
     Route: 058
     Dates: start: 20170601, end: 20190919

REACTIONS (17)
  - Asthmatic crisis [Unknown]
  - Aphonia [Unknown]
  - Tonsillitis [Recovered/Resolved]
  - Sinusitis [Unknown]
  - Bronchospasm [Unknown]
  - Pneumonia [Unknown]
  - Nosocomial infection [Unknown]
  - Therapy non-responder [Unknown]
  - Dyspnoea [Not Recovered/Not Resolved]
  - Oropharyngeal discomfort [Not Recovered/Not Resolved]
  - Sleep disorder [Not Recovered/Not Resolved]
  - Bronchial disorder [Unknown]
  - Agitation [Unknown]
  - Feeling abnormal [Unknown]
  - Chest discomfort [Unknown]
  - Influenza [Unknown]
  - Asthma [Unknown]

NARRATIVE: CASE EVENT DATE: 20190601
